FAERS Safety Report 24257600 (Version 2)
Quarter: 2024Q3

REPORT INFORMATION
  Report Type: Spontaneous
  Country: US (occurrence: US)
  Receive Date: 20240828
  Receipt Date: 20240909
  Transmission Date: 20241017
  Serious: Yes (Death)
  Sender: BIOGEN
  Company Number: US-BIOGEN-2024BI01279727

PATIENT
  Age: 74 Year
  Sex: Male

DRUGS (1)
  1. QALSODY [Suspect]
     Active Substance: TOFERSEN
     Indication: Amyotrophic lateral sclerosis
     Route: 050
     Dates: start: 20231002, end: 20240729

REACTIONS (3)
  - Fall [Fatal]
  - Head injury [Fatal]
  - Dizziness postural [Unknown]

NARRATIVE: CASE EVENT DATE: 20240810
